FAERS Safety Report 15398271 (Version 1)
Quarter: 2018Q4

REPORT INFORMATION
  Report Type: Spontaneous
  Country: ES (occurrence: ES)
  Receive Date: 20180918
  Receipt Date: 20180918
  Transmission Date: 20190204
  Serious: Yes (Hospitalization)
  Sender: FDA-Public Use
  Company Number: ES-TEVA-2018-ES-955632

PATIENT
  Age: 90 Year
  Sex: Male

DRUGS (4)
  1. BISOPROLOL (2328A) [Suspect]
     Active Substance: BISOPROLOL
     Indication: ATRIAL FIBRILLATION
     Dosage: 2.5 MILLIGRAM DAILY;
     Route: 048
     Dates: start: 201711
  2. OLMETEC PLUS 20 MG/25 MG COMPRIMIDOS RECUBIERTOS CON PELICULA [Concomitant]
     Active Substance: HYDROCHLOROTHIAZIDE\OLMESARTAN MEDOXOMIL
     Dosage: 1 DOSAGE FORMS DAILY;
     Route: 065
     Dates: start: 2013
  3. CILOSTAZOL (2257A) [Suspect]
     Active Substance: CILOSTAZOL
     Indication: INTERMITTENT CLAUDICATION
     Dosage: 100 MILLIGRAM DAILY;
     Route: 065
     Dates: start: 20090623
  4. APOCARD 100 MG COMPRIMIDOS , 60 COMPRIMIDOS [Suspect]
     Active Substance: FLECAINIDE ACETATE
     Indication: ATRIAL FIBRILLATION
     Dosage: 100 MILLIGRAM DAILY;
     Route: 048
     Dates: start: 201711

REACTIONS (2)
  - Syncope [Recovered/Resolved]
  - Sinus node dysfunction [Recovered/Resolved]

NARRATIVE: CASE EVENT DATE: 20180118
